FAERS Safety Report 20099944 (Version 6)
Quarter: 2025Q1

REPORT INFORMATION
  Report Type: Report from Study
  Country: CA (occurrence: CA)
  Receive Date: 20211123
  Receipt Date: 20250224
  Transmission Date: 20250409
  Serious: Yes (Hospitalization, Other)
  Sender: TAKEDA
  Company Number: CA-TAKEDA-2021TUS074003

PATIENT
  Age: 74 Year
  Sex: Male

DRUGS (5)
  1. VEDOLIZUMAB [Suspect]
     Active Substance: VEDOLIZUMAB
     Indication: Colitis ulcerative
  2. VEDOLIZUMAB [Suspect]
     Active Substance: VEDOLIZUMAB
     Dosage: 300 MILLIGRAM, Q4WEEKS
     Dates: start: 20171218, end: 20211026
  3. VEDOLIZUMAB [Suspect]
     Active Substance: VEDOLIZUMAB
     Dates: start: 20240808, end: 20241113
  4. PROGRAF [Concomitant]
     Active Substance: TACROLIMUS
  5. CELLCEPT [Concomitant]
     Active Substance: MYCOPHENOLATE MOFETIL

REACTIONS (7)
  - Colitis ulcerative [Unknown]
  - Renal cancer [Unknown]
  - Infection [Unknown]
  - Asthenia [Unknown]
  - Malaise [Unknown]
  - Loss of therapeutic response [Unknown]
  - Off label use [Unknown]

NARRATIVE: CASE EVENT DATE: 20171218
